FAERS Safety Report 14771465 (Version 1)
Quarter: 2018Q2

REPORT INFORMATION
  Report Type: Spontaneous
  Country: US (occurrence: US)
  Receive Date: 20180417
  Receipt Date: 20180417
  Transmission Date: 20180711
  Serious: No
  Sender: FDA-Public Use
  Company Number: US-ALLERGAN-1754749US

PATIENT
  Sex: Female
  Weight: 54.42 kg

DRUGS (3)
  1. LATISSE [Suspect]
     Active Substance: BIMATOPROST
     Indication: GROWTH OF EYELASHES
     Dosage: 2 GTT, QHS
     Route: 061
  2. VISINE AC [Concomitant]
     Indication: EYE PRURITUS
     Dosage: UNK UNK, PRN
     Route: 047
  3. VISINE [Concomitant]
     Active Substance: TETRAHYDROZOLINE HYDROCHLORIDE
     Indication: OCULAR HYPERAEMIA
     Dosage: UNK UNK, PRN
     Route: 047

REACTIONS (2)
  - Product administered at inappropriate site [Unknown]
  - Drug ineffective [Unknown]
